FAERS Safety Report 21565323 (Version 1)
Quarter: 2022Q4

REPORT INFORMATION
  Report Type: Spontaneous
  Country: US (occurrence: None)
  Receive Date: 20221107
  Receipt Date: 20221107
  Transmission Date: 20230112
  Serious: No
  Sender: FDA-Public Use
  Company Number: None

PATIENT
  Sex: Female
  Weight: 103.42 kg

DRUGS (25)
  1. CAPECITABINE [Suspect]
     Active Substance: CAPECITABINE
     Indication: Pancreatic carcinoma
     Dosage: FREQUENCY : TWICE A DAY;?
     Route: 048
     Dates: start: 202209
  2. ALPRAZOLAM [Concomitant]
     Active Substance: ALPRAZOLAM
  3. ASPIRIN [Concomitant]
     Active Substance: ASPIRIN
  4. AZITHROMYCIN [Concomitant]
     Active Substance: AZITHROMYCIN
  5. CARVEDILOL [Concomitant]
     Active Substance: CARVEDILOL
  6. CEFDINIR [Concomitant]
     Active Substance: CEFDINIR
  7. CREON [Concomitant]
     Active Substance: PANCRELIPASE AMYLASE\PANCRELIPASE LIPASE\PANCRELIPASE PROTEASE
  8. DOXYCYCLINE [Concomitant]
     Active Substance: DOXYCYCLINE
  9. FUROSEMIDE [Concomitant]
     Active Substance: FUROSEMIDE
  10. GABAPENTIN [Concomitant]
     Active Substance: GABAPENTIN
  11. KLOR-CON [Concomitant]
     Active Substance: POTASSIUM CHLORIDE
  12. LATANOPROST [Concomitant]
     Active Substance: LATANOPROST
  13. LOMOTIL [Concomitant]
     Active Substance: ATROPINE SULFATE\DIPHENOXYLATE HYDROCHLORIDE
  14. METOCLOPRAMIDE [Concomitant]
     Active Substance: METOCLOPRAMIDE
  15. METRONIDAZOLE [Concomitant]
     Active Substance: METRONIDAZOLE
  16. NITROFURANTOIN [Concomitant]
     Active Substance: NITROFURANTOIN
  17. NORCO [Concomitant]
     Active Substance: ACETAMINOPHEN\HYDROCODONE BITARTRATE
  18. ONDANSETRON [Concomitant]
     Active Substance: ONDANSETRON
  19. PANTOPRAZOLE [Concomitant]
     Active Substance: PANTOPRAZOLE
  20. PRAVACHOL [Concomitant]
     Active Substance: PRAVASTATIN SODIUM
  21. PROMETHAZINE [Concomitant]
     Active Substance: PROMETHAZINE HYDROCHLORIDE
  22. TAMSULOSIN [Concomitant]
     Active Substance: TAMSULOSIN
  23. TIMOLOL [Concomitant]
     Active Substance: TIMOLOL
  24. TRAMADOL [Concomitant]
     Active Substance: TRAMADOL
  25. XARELTO [Concomitant]
     Active Substance: RIVAROXABAN

REACTIONS (1)
  - Ulcer [None]
